FAERS Safety Report 8401580-1 (Version None)
Quarter: 2012Q2

REPORT INFORMATION
  Report Type: 
  Country: None (occurrence: None)
  Receive Date: 20120525
  Receipt Date: 20120514
  Transmission Date: 20120825
  Serious: Yes (Death, Other)
  Sender: FDA-Public Use
  Company Number: 2012P1028667

PATIENT

DRUGS (3)
  1. IRINOTECAN (NO PREF. NAME) [Suspect]
     Indication: METASTATIC NEOPLASM
     Dosage: 180 MG/M2;IV
     Route: 042
  2. CAPECITABINE [Suspect]
     Indication: METASTATIC NEOPLASM
     Dosage: 2500 MG;M2;PO ; 3000 MG/M3;PO
     Route: 048
  3. OXALIPLATIN [Suspect]
     Indication: METASTATIC NEOPLASM
     Dosage: 85 MG/M^2;IV
     Route: 042

REACTIONS (1)
  - LUNG DISORDER [None]
